FAERS Safety Report 8514194-X (Version None)
Quarter: 2012Q3

REPORT INFORMATION
  Report Type: 
  Country: None (occurrence: None)
  Receive Date: 20120717
  Receipt Date: 20120704
  Transmission Date: 20120928
  Serious: Yes (Other)
  Sender: FDA-Public Use
  Company Number: JP-PFIZER INC-2012168092

PATIENT
  Age: 74 Year
  Sex: Female

DRUGS (6)
  1. AMLODIPINE BESYLATE [Suspect]
     Dosage: 0.5 MG DAILY
     Route: 048
  2. KAKKON-TO [Concomitant]
     Dosage: UNK
  3. LIPITOR [Suspect]
     Indication: HYPERCHOLESTEROLAEMIA
     Dosage: 5 MG DAILY
     Route: 048
  4. BOUIOUGITOU [Concomitant]
     Dosage: UNK
  5. BOUFUUTSUUSHOUSAN [Concomitant]
     Dosage: UNK
  6. KEISHIBUKURYOUGAN [Concomitant]
     Dosage: UNK

REACTIONS (2)
  - BLOOD POTASSIUM INCREASED [None]
  - BLOOD ALDOSTERONE DECREASED [None]
